FAERS Safety Report 8647627 (Version 2)
Quarter: 2012Q4

REPORT INFORMATION
  Report Type: 
  Country: US (occurrence: US)
  Receive Date: 20120703
  Receipt Date: 20121210
  Transmission Date: 20130627
  Serious: Yes (Other)
  Sender: FDA-Public Use
  Company Number: US-US-EMD SERONO, INC.-7143558

PATIENT
  Sex: Male

DRUGS (2)
  1. REBIF [Suspect]
     Indication: PRODUCT USED FOR UNKNOWN INDICATION
     Route: 058
     Dates: start: 20110829, end: 201210
  2. TYLENOL [Concomitant]
     Indication: PREMEDICATION

REACTIONS (3)
  - Malignant melanoma [Recovered/Resolved]
  - Metastases to lymph nodes [Recovered/Resolved]
  - Hypoaesthesia [Not Recovered/Not Resolved]
